FAERS Safety Report 7373261-7 (Version None)
Quarter: 2011Q1

REPORT INFORMATION
  Report Type: 
  Country: None (occurrence: None)
  Receive Date: 20110324
  Receipt Date: 20110316
  Transmission Date: 20110831
  Serious: Yes (Other)
  Sender: FDA-Public Use
  Company Number: DE-BAXTER-2011BH006578

PATIENT
  Sex: Female

DRUGS (3)
  1. EXTRANEAL [Concomitant]
     Indication: PRODUCT USED FOR UNKNOWN INDICATION
     Route: 033
  2. DIANEAL [Suspect]
     Indication: PERITONEAL DIALYSIS
     Route: 033
     Dates: start: 20110313
  3. DIANEAL [Suspect]
     Route: 033

REACTIONS (3)
  - NAUSEA [None]
  - MALAISE [None]
  - ASTHENIA [None]
